FAERS Safety Report 5411451-0 (Version None)
Quarter: 2007Q3

REPORT INFORMATION
  Report Type: 
  Country: None (occurrence: None)
  Receive Date: 20070810
  Receipt Date: 20070808
  Transmission Date: 20080115
  Serious: Yes (Hospitalization)
  Sender: FDA-Public Use
  Company Number: DE-BAYER-200610118BVD

PATIENT
  Age: 56 Year
  Sex: Male
  Weight: 94 kg

DRUGS (10)
  1. SORAFENIB [Suspect]
     Indication: RENAL CELL CARCINOMA STAGE UNSPECIFIED
     Dosage: TOTAL DAILY DOSE: 800 MG  UNIT DOSE: 400 MG
     Route: 048
     Dates: start: 20051217, end: 20060112
  2. SORAFENIB [Suspect]
     Dosage: TOTAL DAILY DOSE: 800 MG  UNIT DOSE: 400 MG
     Route: 048
     Dates: start: 20060117, end: 20060209
  3. NOVONORM [Concomitant]
     Indication: DIABETES MELLITUS
     Route: 048
     Dates: start: 20030101
  4. BISOPROLOL [Concomitant]
     Indication: HYPERTENSION
     Route: 048
     Dates: start: 20020101
  5. ALLOPURINOL [Concomitant]
     Indication: GOUT
     Route: 048
     Dates: start: 19990101
  6. EFEROX [Concomitant]
     Indication: HYPOTHYROIDISM
     Route: 048
     Dates: start: 20050601
  7. FRAXIPARIN [Concomitant]
     Indication: THROMBOSIS PROPHYLAXIS
     Route: 058
     Dates: start: 20051001
  8. SALBUTAMOL [Concomitant]
     Indication: DYSPNOEA
     Route: 055
     Dates: start: 20051201
  9. ATROVENT [Concomitant]
     Indication: DYSPNOEA
     Route: 055
     Dates: start: 20051201
  10. IRON SUPPLEMENT [Concomitant]
     Route: 048
     Dates: start: 20050901

REACTIONS (2)
  - GENERAL PHYSICAL HEALTH DETERIORATION [None]
  - GRAND MAL CONVULSION [None]
